FAERS Safety Report 13986625 (Version 2)
Quarter: 2017Q4

REPORT INFORMATION
  Report Type: Report from Study
  Country: US (occurrence: US)
  Receive Date: 20170919
  Receipt Date: 20171027
  Transmission Date: 20180321
  Serious: Yes (Hospitalization)
  Sender: FDA-Public Use
  Company Number: US-009507513-1709USA007291

PATIENT
  Sex: Male

DRUGS (18)
  1. NYSTATIN. [Concomitant]
     Active Substance: NYSTATIN
  2. PILOCARPINE. [Concomitant]
     Active Substance: PILOCARPINE
  3. WARFARIN [Concomitant]
     Active Substance: WARFARIN
  4. DOXAZOSIN [Concomitant]
     Active Substance: DOXAZOSIN\DOXAZOSIN MESYLATE
  5. PANTOPRAZOLE [Concomitant]
     Active Substance: PANTOPRAZOLE
  6. ASPIRIN. [Concomitant]
     Active Substance: ASPIRIN
     Route: 048
  7. FUROSEMIDE. [Concomitant]
     Active Substance: FUROSEMIDE
  8. ATIVAN [Concomitant]
     Active Substance: LORAZEPAM
  9. METOPROLOL. [Concomitant]
     Active Substance: METOPROLOL
  10. INVADO NEUTRASAL [Concomitant]
  11. KEYTRUDA [Suspect]
     Active Substance: PEMBROLIZUMAB
     Dosage: 200 MG EVERY 3 WEEKS
     Route: 042
     Dates: start: 20170823, end: 20170823
  12. ACYCLOVIR. [Concomitant]
     Active Substance: ACYCLOVIR
  13. OXYCODONE [Concomitant]
     Active Substance: OXYCODONE
  14. KEYTRUDA [Suspect]
     Active Substance: PEMBROLIZUMAB
     Indication: SQUAMOUS CELL CARCINOMA OF THE TONGUE
     Dosage: 200 MG EVERY 3 WEEKS
     Route: 042
     Dates: start: 20170802, end: 20170802
  15. AMOXICILLIN. [Concomitant]
     Active Substance: AMOXICILLIN
  16. ESOMEPRAZOLE MAGNESIUM. [Concomitant]
     Active Substance: ESOMEPRAZOLE MAGNESIUM
     Route: 048
  17. SYNTHROID [Concomitant]
     Active Substance: LEVOTHYROXINE SODIUM
  18. ZOLOFT [Concomitant]
     Active Substance: SERTRALINE HYDROCHLORIDE

REACTIONS (2)
  - General physical health deterioration [Unknown]
  - Adverse event [Unknown]

NARRATIVE: CASE EVENT DATE: 2017
